FAERS Safety Report 24828018 (Version 3)
Quarter: 2025Q1

REPORT INFORMATION
  Report Type: Report from Study
  Country: US (occurrence: US)
  Receive Date: 20250109
  Receipt Date: 20250326
  Transmission Date: 20250409
  Serious: Yes (Hospitalization)
  Sender: AVADEL CNS PHARMACEUTICALS, LLC
  Company Number: US-AVADEL CNS PHARMACEUTICALS, LLC-2024AVA02491

PATIENT
  Age: 69 Year
  Sex: Male
  Weight: 87.982 kg

DRUGS (37)
  1. LUMRYZ [Suspect]
     Active Substance: SODIUM OXYBATE
     Indication: Narcolepsy
     Dosage: 9 G, ONCE NIGHTLY
     Route: 048
     Dates: start: 20241213, end: 20241223
  2. LUMRYZ [Suspect]
     Active Substance: SODIUM OXYBATE
     Indication: Cataplexy
     Dosage: 9 G, ONCE NIGHTLY
     Route: 048
     Dates: start: 20241226
  3. UNSPECIFIED INGREDIENT [Suspect]
     Active Substance: UNSPECIFIED INGREDIENT
  4. IGG IMMUNOTHERAPY [Concomitant]
  5. IGA IMMUNOTHERAPY [Concomitant]
  6. VITAMIN D NOS [Concomitant]
     Active Substance: CHOLECALCIFEROL\ERGOCALCIFEROL
  7. CYANOCOBALAMIN [Concomitant]
     Active Substance: CYANOCOBALAMIN
  8. TESTOSTERONE [Concomitant]
     Active Substance: TESTOSTERONE
  9. CIALIS [Concomitant]
     Active Substance: TADALAFIL
  10. SULFASALAZINE [Concomitant]
     Active Substance: SULFASALAZINE
  11. RAMIPRIL [Concomitant]
     Active Substance: RAMIPRIL
  12. PROBIOTIC 10B CELL [Concomitant]
  13. OMEPRAZOLE [Concomitant]
     Active Substance: OMEPRAZOLE
  14. MUCINEX DM [Concomitant]
     Active Substance: DEXTROMETHORPHAN HYDROBROMIDE\GUAIFENESIN
  15. MODAFINIL [Concomitant]
     Active Substance: MODAFINIL
  16. RITALIN [Concomitant]
     Active Substance: METHYLPHENIDATE HYDROCHLORIDE
  17. MULTIVITAMIN 50 PLUS [Concomitant]
  18. LAMOTRIGINE [Concomitant]
     Active Substance: LAMOTRIGINE
  19. IPRATROPIUM BROMIDE [Concomitant]
     Active Substance: IPRATROPIUM BROMIDE
  20. DIMETHICONE\LOPERAMIDE HYDROCHLORIDE [Concomitant]
     Active Substance: DIMETHICONE\LOPERAMIDE HYDROCHLORIDE
  21. GENTAMICIN SULFATE [Concomitant]
     Active Substance: GENTAMICIN SULFATE
  22. GABAPENTIN [Concomitant]
     Active Substance: GABAPENTIN
  23. FUROSEMIDE [Concomitant]
     Active Substance: FUROSEMIDE
  24. FLUTICASONE PROPIONATE [Concomitant]
     Active Substance: FLUTICASONE PROPIONATE
  25. FLUOXETINE HYDROCHLORIDE [Concomitant]
     Active Substance: FLUOXETINE HYDROCHLORIDE
  26. IRON [Concomitant]
     Active Substance: IRON
  27. PEPCID [Concomitant]
     Active Substance: FAMOTIDINE
  28. LOPERAMIDE HYDROCHLORIDE [Concomitant]
     Active Substance: LOPERAMIDE HYDROCHLORIDE
  29. DICLOFENAC POTASSIUM [Concomitant]
     Active Substance: DICLOFENAC POTASSIUM
  30. DEPLIN FC [Concomitant]
  31. CHOLESTYRAMINE [Concomitant]
     Active Substance: CHOLESTYRAMINE
  32. CALCIUM CARBONATE\CHOLECALCIFEROL [Concomitant]
     Active Substance: CALCIUM CARBONATE\CHOLECALCIFEROL
  33. BUSPIRONE HCL [Concomitant]
     Active Substance: BUSPIRONE HYDROCHLORIDE
  34. WELLBUTRIN XL [Concomitant]
     Active Substance: BUPROPION HYDROCHLORIDE
  35. ATORVASTATIN CALCIUM [Concomitant]
     Active Substance: ATORVASTATIN CALCIUM
  36. ALFUZOSIN HYDROCHLORIDE [Concomitant]
     Active Substance: ALFUZOSIN HYDROCHLORIDE
  37. ALBUTEROL SULFATE [Concomitant]
     Active Substance: ALBUTEROL SULFATE

REACTIONS (11)
  - Urinary tract infection [Unknown]
  - Anaemia [Unknown]
  - Pneumonia [Unknown]
  - Influenza [Unknown]
  - Dysphonia [Not Recovered/Not Resolved]
  - Terminal insomnia [Not Recovered/Not Resolved]
  - Nasopharyngitis [Not Recovered/Not Resolved]
  - Cough [Not Recovered/Not Resolved]
  - Vision blurred [Not Recovered/Not Resolved]
  - Decreased appetite [Unknown]
  - Weight decreased [Not Recovered/Not Resolved]

NARRATIVE: CASE EVENT DATE: 20241201
